FAERS Safety Report 25903919 (Version 5)
Quarter: 2025Q4

REPORT INFORMATION
  Report Type: Spontaneous
  Country: JP (occurrence: JP)
  Receive Date: 20251010
  Receipt Date: 20251225
  Transmission Date: 20260117
  Serious: Yes (Death, Hospitalization, Other)
  Sender: ASTELLAS
  Company Number: JP-ASTELLAS-2025-AER-055175

PATIENT
  Age: 81 Year
  Sex: Male
  Weight: 36 kg

DRUGS (7)
  1. VYLOY [Suspect]
     Active Substance: ZOLBETUXIMAB-CLZB
     Indication: Gastric cancer
     Route: 042
     Dates: start: 20250723, end: 20250723
  2. VYLOY [Suspect]
     Active Substance: ZOLBETUXIMAB-CLZB
     Dosage: THE SECOND AND SUBSEQUENT DOSE WAS 600 MG/M2
     Route: 042
     Dates: start: 20250818, end: 20250818
  3. VYLOY [Suspect]
     Active Substance: ZOLBETUXIMAB-CLZB
     Route: 042
     Dates: start: 20250908, end: 20250908
  4. CAPECITABINE [Suspect]
     Active Substance: CAPECITABINE
     Indication: Gastric cancer
     Route: 048
     Dates: start: 20250723
  5. CAPECITABINE [Suspect]
     Active Substance: CAPECITABINE
     Dosage: ONE-STEP DOSE REDUCTION
     Route: 048
     Dates: start: 20250908, end: 20250921
  6. OXALIPLATIN [Suspect]
     Active Substance: OXALIPLATIN
     Indication: Gastric cancer
     Route: 042
     Dates: start: 20250723
  7. OXALIPLATIN [Suspect]
     Active Substance: OXALIPLATIN
     Route: 042
     Dates: start: 20250908, end: 20251027

REACTIONS (6)
  - Decreased appetite [Fatal]
  - Cachexia [Fatal]
  - Ascites [Not Recovered/Not Resolved]
  - Nausea [Recovered/Resolved]
  - Decreased appetite [Recovered/Resolved]
  - Nausea [Recovered/Resolved]

NARRATIVE: CASE EVENT DATE: 20250723
